FAERS Safety Report 6012718-8 (Version None)
Quarter: 2008Q4

REPORT INFORMATION
  Report Type: 
  Country: None (occurrence: None)
  Receive Date: 20081218
  Receipt Date: 20081209
  Transmission Date: 20090506
  Serious: Yes (Other)
  Sender: FDA-Public Use
  Company Number: US-AMGEN-KDL322285

PATIENT
  Sex: Female

DRUGS (2)
  1. ENBREL [Suspect]
     Indication: PSORIATIC ARTHROPATHY
     Route: 058
     Dates: start: 20080301
  2. PLAQUENIL [Concomitant]
     Route: 048

REACTIONS (5)
  - ATRIAL FIBRILLATION [None]
  - FALL [None]
  - LACERATION [None]
  - NASAL CONGESTION [None]
  - OCULAR HYPERAEMIA [None]
